FAERS Safety Report 8009371-0 (Version None)
Quarter: 2011Q4

REPORT INFORMATION
  Report Type: 
  Country: None (occurrence: None)
  Receive Date: 20111227
  Receipt Date: 20111213
  Transmission Date: 20120403
  Serious: Yes (Hospitalization)
  Sender: FDA-Public Use
  Company Number: JP-PFIZER INC-2011261609

PATIENT
  Sex: Male
  Weight: 50 kg

DRUGS (45)
  1. SUNITINIB MALATE [Suspect]
     Dosage: 50 MG, 1X/DAY
     Dates: start: 20100805, end: 20100809
  2. BETAMETHASONE [Concomitant]
     Dosage: 2 MG, 1X/DAY
     Route: 042
     Dates: start: 20100722
  3. BETAMETHASONE [Concomitant]
     Dosage: 2 MG, 1X/DAY
     Route: 042
     Dates: start: 20100902
  4. SOLDEM 3A [Concomitant]
     Dosage: 200 ML, 1X/DAY
     Route: 042
     Dates: start: 20100902
  5. PLEVITA S [Concomitant]
     Dosage: 1A ONCE DAILY
     Route: 042
     Dates: start: 20100904
  6. BETAMETHASONE [Concomitant]
     Dosage: 2 MG, 1X/DAY
     Route: 042
     Dates: start: 20100812
  7. VEEN D [Concomitant]
     Dosage: 500 ML, 1X/DAY
     Route: 042
     Dates: start: 20100805
  8. PLEVITA S [Concomitant]
     Dosage: 1A ONCE DAILY
     Route: 042
     Dates: start: 20100826, end: 20100827
  9. SUNITINIB MALATE [Suspect]
     Dosage: 50 MG, 1X/DAY
     Dates: start: 20100904, end: 20100908
  10. SHAKUYAKU-KANZO-TO [Concomitant]
     Dosage: UNK
     Route: 048
  11. SOLDEM 3A [Concomitant]
     Dosage: 200 ML, 1X/DAY
     Route: 042
     Dates: start: 20100826, end: 20100827
  12. SOLDEM 3A [Concomitant]
     Dosage: 200 ML, 1X/DAY
     Route: 042
     Dates: start: 20100904
  13. RINDERON-VG [Concomitant]
     Dosage: 10 G, ONCE OR TWICE DAILY
     Dates: start: 20100819, end: 20101021
  14. PLEVITA S [Concomitant]
     Dosage: 1A ONCE DAILY
     Route: 042
     Dates: start: 20100722
  15. SUNITINIB MALATE [Suspect]
     Dosage: 37.5 MG, 1X/DAY
     Dates: start: 20100715, end: 20100721
  16. SUNITINIB MALATE [Suspect]
     Dosage: 50 MG, 1X/DAY
     Dates: start: 20100812, end: 20100818
  17. SUNITINIB MALATE [Suspect]
     Dosage: 50 MG, 1X/DAY
     Dates: start: 20100911, end: 20100913
  18. LOXONIN [Concomitant]
     Dosage: UNK
     Route: 048
  19. BETAMETHASONE [Concomitant]
     Dosage: 2 MG, 1X/DAY
     Route: 042
     Dates: start: 20100916
  20. HALCION [Concomitant]
     Dosage: UNK
     Route: 048
  21. BETAMETHASONE [Concomitant]
     Dosage: 2 MG, 1X/DAY
     Route: 042
     Dates: start: 20100805
  22. BETAMETHASONE [Concomitant]
     Dosage: 2 MG, 1X/DAY
     Route: 042
     Dates: start: 20100819
  23. SOLDEM 3A [Concomitant]
     Dosage: 200 ML, 1X/DAY
     Route: 042
     Dates: start: 20100812
  24. JUVELA [Concomitant]
     Dosage: 40 G, ONCE OR TWICE DAILY
     Dates: start: 20100819, end: 20101021
  25. PLEVITA S [Concomitant]
     Dosage: 1A ONCE DAILY
     Route: 042
     Dates: start: 20100715
  26. PLEVITA S [Concomitant]
     Dosage: 1A ONCE DAILY
     Route: 042
     Dates: start: 20100812
  27. PLEVITA S [Concomitant]
     Dosage: 1A ONCE DAILY
     Route: 042
     Dates: start: 20100916
  28. SUNITINIB MALATE [Suspect]
     Dosage: 50 MG, ALTERNATE DAY
     Dates: start: 20100916, end: 20101012
  29. VEEN D [Concomitant]
     Dosage: 500 ML, 1X/DAY
     Dates: start: 20100715
  30. SOLDEM 3A [Concomitant]
     Dosage: 200 ML, 1X/DAY
     Route: 042
     Dates: start: 20100916
  31. SUNITINIB MALATE [Suspect]
     Dosage: 50 MG, 1X/DAY
     Dates: start: 20100826, end: 20100830
  32. BETAMETHASONE [Concomitant]
     Dosage: 2 MG, 1X/DAY
     Route: 042
     Dates: start: 20100708
  33. BETAMETHASONE [Concomitant]
     Dosage: 2 MG, 1X/DAY
     Route: 042
     Dates: start: 20100826, end: 20100827
  34. BETAMETHASONE [Concomitant]
     Dosage: 2 MG, 1X/DAY
     Route: 042
     Dates: start: 20100904
  35. BETAMETHASONE [Concomitant]
     Dosage: 2 MG, 1X/DAY
     Route: 048
     Dates: start: 20100729
  36. VEEN D [Concomitant]
     Dosage: 500 ML, 1X/DAY
     Route: 042
     Dates: start: 20100722
  37. SOLDEM 3A [Concomitant]
     Dosage: 200 ML, 1X/DAY
     Route: 042
     Dates: start: 20100819
  38. PLEVITA S [Concomitant]
     Dosage: 1A ONCE DAILY
     Route: 042
     Dates: start: 20100708
  39. SUNITINIB MALATE [Suspect]
     Indication: GASTROINTESTINAL STROMAL TUMOUR
     Dosage: 50 MG, 1X/DAY
     Route: 048
     Dates: start: 20090212
  40. SUNITINIB MALATE [Suspect]
     Dosage: 50 MG, 1X/DAY
     Dates: start: 20100722, end: 20100728
  41. BETAMETHASONE [Concomitant]
     Dosage: 2 MG, 1X/DAY
     Route: 042
     Dates: start: 20100715
  42. VEEN D [Concomitant]
     Dosage: 500 ML, 1X/DAY
     Route: 042
     Dates: start: 20100708
  43. PLEVITA S [Concomitant]
     Dosage: 1A ONCE DAILY
     Route: 042
     Dates: start: 20100805
  44. PLEVITA S [Concomitant]
     Dosage: 1A ONCE DAILY
     Route: 042
     Dates: start: 20100819
  45. PLEVITA S [Concomitant]
     Dosage: 1A ONCE DAILY
     Route: 042
     Dates: start: 20100902

REACTIONS (6)
  - ALANINE AMINOTRANSFERASE INCREASED [None]
  - BLOOD ALKALINE PHOSPHATASE INCREASED [None]
  - GAMMA-GLUTAMYLTRANSFERASE INCREASED [None]
  - ASPARTATE AMINOTRANSFERASE INCREASED [None]
  - BLOOD BILIRUBIN INCREASED [None]
  - JAUNDICE CHOLESTATIC [None]
